FAERS Safety Report 5135652-4 (Version None)
Quarter: 2006Q4

REPORT INFORMATION
  Report Type: 
  Country: None (occurrence: None)
  Receive Date: 20061020
  Receipt Date: 20060830
  Transmission Date: 20070319
  Serious: Yes (Other)
  Sender: FDA-Public Use
  Company Number: P200600004

PATIENT
  Sex: Male

DRUGS (4)
  1. PLENAXIS [Suspect]
     Indication: PROSTATE CANCER
     Dosage: SEE IMAGE
     Route: 030
     Dates: start: 20050414, end: 20050414
  2. PLENAXIS [Suspect]
     Indication: PROSTATE CANCER
     Dosage: SEE IMAGE
     Route: 030
     Dates: start: 20050428, end: 20050428
  3. PLENAXIS [Suspect]
     Indication: PROSTATE CANCER
     Dosage: SEE IMAGE
     Route: 030
     Dates: start: 20050516, end: 20050516
  4. PLENAXIS [Suspect]
     Indication: PROSTATE CANCER
     Dosage: SEE IMAGE
     Route: 030
     Dates: start: 20050617, end: 20050617

REACTIONS (4)
  - BLOOD PRESSURE DIASTOLIC DECREASED [None]
  - HYPERSENSITIVITY [None]
  - INJECTION SITE IRRITATION [None]
  - SKIN WARM [None]
